FAERS Safety Report 7283622-2 (Version None)
Quarter: 2011Q1

REPORT INFORMATION
  Report Type: 
  Country: None (occurrence: None)
  Receive Date: 20110209
  Receipt Date: 20110202
  Transmission Date: 20110831
  Serious: Yes (Hospitalization)
  Sender: FDA-Public Use
  Company Number: B0698175A

PATIENT
  Age: 43 Year
  Sex: Female

DRUGS (3)
  1. SUMATRIPTAN SUCCINATE [Suspect]
     Route: 048
     Dates: start: 20110122
  2. SUMATRIPTAN SUCCINATE [Concomitant]
     Route: 045
  3. SUMATRIPTAN SUCCINATE [Concomitant]
     Route: 058

REACTIONS (3)
  - HYPERTHERMIA [None]
  - ANAPHYLACTIC SHOCK [None]
  - URTICARIA [None]
